FAERS Safety Report 5715258-6 (Version None)
Quarter: 2008Q2

REPORT INFORMATION
  Report Type: 
  Country: None (occurrence: None)
  Receive Date: 20080423
  Receipt Date: 20080415
  Transmission Date: 20081010
  Serious: Yes (Hospitalization)
  Sender: FDA-Public Use
  Company Number: US-PFIZER INC-2008017933

PATIENT
  Sex: Male
  Weight: 76.2 kg

DRUGS (14)
  1. SUTENT [Suspect]
     Indication: GLIOBLASTOMA
     Route: 048
     Dates: start: 20080205, end: 20080211
  2. SODIUM BIPHOSPHATE [Concomitant]
     Indication: ENEMA ADMINISTRATION
     Route: 054
  3. MAALOX [Concomitant]
     Indication: ABDOMINAL DISCOMFORT
     Route: 048
  4. DULCOLAX [Concomitant]
     Route: 054
  5. OMEPRAZOLE [Concomitant]
     Route: 048
     Dates: start: 20080213
  6. COLACE [Concomitant]
     Route: 048
     Dates: start: 20080213
  7. COMPAZINE [Concomitant]
     Route: 042
  8. VITAMIN CAP [Concomitant]
     Dosage: TEXT:1 TABLETS-FREQ:DAILY
     Route: 048
     Dates: start: 20080213
  9. ACETAMINOPHEN [Concomitant]
     Route: 048
  10. PERCOCET [Concomitant]
     Dosage: TEXT:5MG/325MG-FREQ:AS NECESSARY
  11. ATENOLOL [Concomitant]
     Route: 048
     Dates: start: 20080207
  12. CITALOPRAM HYDROBROMIDE [Concomitant]
     Route: 048
     Dates: start: 20080213
  13. LEVOXYL [Concomitant]
     Route: 048
     Dates: start: 20080204
  14. GALANTAMINE [Concomitant]
     Route: 048
     Dates: start: 20080123

REACTIONS (3)
  - CEREBRAL ISCHAEMIA [None]
  - HYDROCEPHALUS [None]
  - WOUND INFECTION [None]
